FAERS Safety Report 5896877-3 (Version None)
Quarter: 2008Q3

REPORT INFORMATION
  Report Type: 
  Country: None (occurrence: None)
  Receive Date: 20080924
  Receipt Date: 20071107
  Transmission Date: 20090109
  Serious: No
  Sender: FDA-Public Use
  Company Number: US-BAYER-200714392BWH

PATIENT
  Age: 67 Year
  Sex: Male

DRUGS (1)
  1. AVELOX [Suspect]
     Indication: INFECTED SKIN ULCER
     Route: 048
     Dates: end: 20071107

REACTIONS (4)
  - DISORIENTATION [None]
  - DRY MOUTH [None]
  - HYPERSENSITIVITY [None]
  - NERVOUSNESS [None]
